FAERS Safety Report 7455570-6 (Version None)
Quarter: 2011Q2

REPORT INFORMATION
  Report Type: 
  Country: None (occurrence: None)
  Receive Date: 20110503
  Receipt Date: 20110427
  Transmission Date: 20111010
  Serious: Yes (Other)
  Sender: FDA-Public Use
  Company Number: US-ROCHE-747568

PATIENT
  Sex: Male
  Weight: 120.2 kg

DRUGS (2)
  1. ACCUTANE [Suspect]
     Route: 065
     Dates: end: 19880201
  2. ACCUTANE [Suspect]
     Indication: ACNE
     Route: 065
     Dates: start: 19870601, end: 19880131

REACTIONS (4)
  - HAEMORRHOIDS [None]
  - INFLAMMATORY BOWEL DISEASE [None]
  - GASTROINTESTINAL INJURY [None]
  - COLITIS ULCERATIVE [None]
